FAERS Safety Report 15653542 (Version 1)
Quarter: 2018Q4

REPORT INFORMATION
  Report Type: Spontaneous
  Country: ES (occurrence: ES)
  Receive Date: 20181124
  Receipt Date: 20181124
  Transmission Date: 20190205
  Serious: Yes (Other)
  Sender: FDA-Public Use
  Company Number: ES-ACCORD-092775

PATIENT
  Age: 14 Year
  Sex: Female

DRUGS (11)
  1. TEMOZOLOMIDE. [Suspect]
     Active Substance: TEMOZOLOMIDE
     Indication: EWING^S SARCOMA
     Dosage: 100 MG/M2,QD ON DAYS 1-21
     Route: 048
     Dates: start: 201004
  2. VINCRISTINE SULFATE. [Suspect]
     Active Substance: VINCRISTINE SULFATE
     Indication: EWING^S SARCOMA
     Dosage: ON DAY ONE; COMPLETED SIX CYCLES PRIOR TO SURGICAL RESECTION.
     Route: 042
     Dates: start: 200904
  3. IRINOTECAN [Suspect]
     Active Substance: IRINOTECAN
     Indication: EWING^S SARCOMA
     Dosage: ON DAYS 1-5 AND 8-13
     Route: 042
     Dates: start: 201004
  4. BEVACIZUMAB. [Suspect]
     Active Substance: BEVACIZUMAB
     Indication: EWING^S SARCOMA
     Dosage: ON DAY 1 (EVERY 21 DAYS X 5 CYCLES)
     Route: 042
     Dates: start: 201004
  5. DOXORUBICIN [Suspect]
     Active Substance: DOXORUBICIN
     Indication: EWING^S SARCOMA
     Dosage: ON DAYS 1-3. COMPLETED SIX CYCLES PRIOR TO SURGICAL RESECTION.
     Route: 042
     Dates: start: 200904
  6. ETOPOSIDE. [Suspect]
     Active Substance: ETOPOSIDE
     Indication: EWING^S SARCOMA
     Dosage: ON DAYS 1-3 (EVERY THREE WEEKS X 6 CYCLES). COMPLETED SIX CYCLES PRIOR TO?SURGICAL RESECTION
     Route: 042
     Dates: start: 200904
  7. ACTINOMYCIN D [Suspect]
     Active Substance: DACTINOMYCIN
     Indication: EWING^S SARCOMA
     Dosage: .75 MG/M2,QD
     Route: 042
     Dates: start: 200910
  8. CYCLOPHOSPHAMIDE/CYCLOPHOSPHAMIDE MONOHYDRATE [Suspect]
     Active Substance: CYCLOPHOSPHAMIDE
     Indication: EWING^S SARCOMA
     Dosage: ON DAY 1; EVERY THREE WEEKS X 8 CYCLES.
     Route: 042
     Dates: start: 200910
  9. IFOSFAMIDE. [Suspect]
     Active Substance: IFOSFAMIDE
     Indication: EWING^S SARCOMA
     Dosage: ON DAYS 1-3. COMPLETED SIX CYCLES PRIOR TO SURGICAL RESECTION.
     Route: 042
     Dates: start: 200904
  10. VINCRISTINE [Suspect]
     Active Substance: VINCRISTINE
     Indication: EWING^S SARCOMA
     Dosage: 1.5 MG/M2,Q3W,ALSO ON APR-2009,ON DAY ONE COMPLETED SIX CYCLES PRIOR TO SURGICAL RESECTION
     Route: 042
     Dates: start: 200910
  11. DACTINOMYCIN [Suspect]
     Active Substance: DACTINOMYCIN
     Indication: EWING^S SARCOMA
     Dosage: 0.75 MG/M2, QD DAYS 1-2 EVERY 3 WEEKS
     Route: 042
     Dates: start: 200910

REACTIONS (3)
  - Off label use [Unknown]
  - Drug ineffective [Unknown]
  - Blood stem cell harvest failure [Recovered/Resolved]

NARRATIVE: CASE EVENT DATE: 201007
